FAERS Safety Report 10695630 (Version 1)
Quarter: 2014Q4

REPORT INFORMATION
  Report Type: Report from Study
  Country: US (occurrence: None)
  Receive Date: 20141223
  Receipt Date: 20141223
  Transmission Date: 20150529
  Serious: Yes (Other)
  Sender: FDA-Public Use
  Company Number: CABO-14004877

PATIENT
  Age: 49 Year
  Sex: Male

DRUGS (1)
  1. COMETRIQ [Suspect]
     Active Substance: CABOZANTINIB S-MALATE
     Indication: THYROID CANCER
     Route: 048
     Dates: start: 20141010, end: 20141019

REACTIONS (3)
  - Fatigue [None]
  - Epistaxis [None]
  - Erythema [None]

NARRATIVE: CASE EVENT DATE: 20141017
